FAERS Safety Report 7224367-4 (Version None)
Quarter: 2011Q1

REPORT INFORMATION
  Report Type: 
  Country: None (occurrence: None)
  Receive Date: 20110103
  Receipt Date: 20101216
  Transmission Date: 20110831
  Serious: Yes (Other)
  Sender: FDA-Public Use
  Company Number: 2010P1003431

PATIENT
  Sex: Female
  Weight: 55.3388 kg

DRUGS (6)
  1. FENTANYL-25 [Suspect]
     Indication: SCLERODERMA
     Dosage: 25 MCG/HR;Q72H;TDER
     Route: 062
     Dates: start: 20100701, end: 20101216
  2. TOPAMAX [Concomitant]
  3. FENTANYL-75 [Suspect]
     Indication: SCLERODERMA
     Dosage: MCG/HR; Q72H; TDER
     Route: 062
     Dates: start: 20101216
  4. PLAQUENIL [Concomitant]
  5. PREDNISONE [Concomitant]
  6. DEPAKOTE [Concomitant]

REACTIONS (3)
  - PAIN IN EXTREMITY [None]
  - WOUND [None]
  - OEDEMA PERIPHERAL [None]
